FAERS Safety Report 9035826 (Version 1)
Quarter: 2013Q1

REPORT INFORMATION
  Report Type: Report from Study
  Country: US (occurrence: US)
  Receive Date: 20130129
  Receipt Date: 20130129
  Transmission Date: 20140127
  Serious: No
  Sender: FDA-Public Use
  Company Number: US-ABBOTT-12P-163-0927236-00

PATIENT
  Age: 49 Year
  Sex: Female

DRUGS (9)
  1. HUMIRA 40 MG/0.8 ML PEN [Suspect]
     Indication: PSORIATIC ARTHROPATHY
     Dates: start: 201203
  2. AMBIEN [Concomitant]
     Indication: INSOMNIA
     Dosage: AT BEDTIME
  3. TRAZODONE [Concomitant]
     Indication: INSOMNIA
     Dosage: 1/2 TAB AT BEDTIME
  4. SOMA [Concomitant]
     Indication: ARTHRALGIA
     Dosage: 350MG X 1-2 TABS DAILY
  5. XANAX [Concomitant]
     Indication: ILL-DEFINED DISORDER
     Dosage: 1MG X 1-3 TABS DAILY
  6. LISINOPRIL [Concomitant]
     Indication: BLOOD PRESSURE ABNORMAL
     Dosage: 40MG 1/2-1 TAB DAILY DEPENDING ON BLOOD PRESSURE
  7. PRAVASTATIN [Concomitant]
     Indication: BLOOD CHOLESTEROL INCREASED
  8. LEVOTHYROXINE [Concomitant]
     Indication: HYPOTHYROIDISM
  9. ZYRTEC [Concomitant]
     Indication: HYPERSENSITIVITY
     Dosage: 2 TABS EVERY DAY

REACTIONS (1)
  - Injection site pain [Recovered/Resolved]
